FAERS Safety Report 26165164 (Version 1)
Quarter: 2025Q4

REPORT INFORMATION
  Report Type: Spontaneous
  Country: US (occurrence: US)
  Receive Date: 20251216
  Receipt Date: 20251216
  Transmission Date: 20260118
  Serious: No
  Sender: BRACCO
  Company Number: US-BRACCO-2025US08026

PATIENT
  Age: 54 Year
  Sex: Male

DRUGS (1)
  1. VARIBAR THIN LIQUID [Suspect]
     Active Substance: BARIUM SULFATE
     Indication: Barium swallow
     Dosage: UNK, SINGLE
     Dates: start: 20251113, end: 20251113

REACTIONS (2)
  - Product deposit [Unknown]
  - No adverse event [Unknown]

NARRATIVE: CASE EVENT DATE: 20251113
